FAERS Safety Report 8561727-3 (Version None)
Quarter: 2012Q3

REPORT INFORMATION
  Report Type: 
  Country: None (occurrence: None)
  Receive Date: 20120802
  Receipt Date: 20120723
  Transmission Date: 20120928
  Serious: Yes (Death)
  Sender: FDA-Public Use
  Company Number: JP-BAXTER-2012BAX012930

PATIENT
  Sex: Female

DRUGS (11)
  1. FLUOROURACIL [Suspect]
     Route: 042
     Dates: start: 20120717, end: 20120722
  2. CYCLOPHOSPHAMIDE [Suspect]
     Indication: BREAST CANCER
     Route: 041
     Dates: start: 20120625
  3. AMARYL [Concomitant]
     Indication: TYPE 2 DIABETES MELLITUS
     Route: 048
     Dates: start: 20120714, end: 20120721
  4. CYCLOPHOSPHAMIDE [Suspect]
     Route: 041
     Dates: start: 20120717, end: 20120722
  5. EPIRUBICIN HYDROCHLORIDE [Suspect]
     Indication: BREAST CANCER
     Route: 042
     Dates: start: 20120625
  6. GABAPENTIN [Concomitant]
     Indication: CANCER PAIN
     Route: 048
     Dates: start: 20120626, end: 20120721
  7. SITAGLIPTIN PHOSPHATE [Concomitant]
     Indication: TYPE 2 DIABETES MELLITUS
     Route: 048
     Dates: start: 20120706, end: 20120721
  8. CELEBREX [Concomitant]
     Indication: CANCER PAIN
     Route: 048
     Dates: start: 20120627, end: 20120721
  9. EPIRUBICIN HYDROCHLORIDE [Suspect]
     Route: 042
     Dates: start: 20120717, end: 20120722
  10. FLUOROURACIL [Suspect]
     Indication: BREAST CANCER
     Route: 041
     Dates: start: 20120625
  11. FENTANYL CITRATE [Concomitant]
     Indication: CANCER PAIN
     Route: 062
     Dates: start: 20120630, end: 20120721

REACTIONS (2)
  - FEBRILE NEUTROPENIA [None]
  - SEPTIC SHOCK [None]
